FAERS Safety Report 9309214 (Version 1)
Quarter: 2013Q2

REPORT INFORMATION
  Report Type: Spontaneous
  Country: US (occurrence: US)
  Receive Date: 20130525
  Receipt Date: 20130525
  Transmission Date: 20140414
  Serious: No
  Sender: FDA-Public Use
  Company Number: US-BRISTOL-MYERS SQUIBB COMPANY-18697763

PATIENT
  Sex: Female

DRUGS (3)
  1. BYDUREON [Suspect]
     Route: 058
     Dates: start: 20130304
  2. METFORMIN [Concomitant]
     Indication: DIABETES MELLITUS
  3. JANUVIA [Concomitant]
     Indication: DIABETES MELLITUS

REACTIONS (2)
  - Tremor [Not Recovered/Not Resolved]
  - Nausea [Not Recovered/Not Resolved]
